FAERS Safety Report 18490508 (Version 2)
Quarter: 2020Q4

REPORT INFORMATION
  Report Type: Spontaneous
  Country: US (occurrence: US)
  Receive Date: 20201111
  Receipt Date: 20201223
  Transmission Date: 20210114
  Serious: Yes (Hospitalization, Other)
  Sender: FDA-Public Use
  Company Number: US-AMGEN-USASP2020179581

PATIENT
  Age: 8 Year
  Sex: Male

DRUGS (5)
  1. TACROLIMUS. [Concomitant]
     Active Substance: TACROLIMUS
     Indication: LIVER TRANSPLANT
     Dosage: UNK
  2. COTRIMOXAZOLE [Concomitant]
     Active Substance: SULFAMETHOXAZOLE\TRIMETHOPRIM
     Indication: PROPHYLAXIS
     Dosage: UNK
  3. FILGRASTIM [Suspect]
     Active Substance: FILGRASTIM
     Indication: CYTOPENIA
     Dosage: UNK
     Route: 065
  4. PREDNISONE. [Concomitant]
     Active Substance: PREDNISONE
     Indication: LIVER TRANSPLANT
     Dosage: UNK
  5. AMOXICILLIN. [Concomitant]
     Active Substance: AMOXICILLIN
     Indication: PROPHYLAXIS
     Dosage: UNK

REACTIONS (25)
  - Pancreatic failure [Unknown]
  - Malnutrition [Unknown]
  - Ascites [Unknown]
  - Skin ulcer [Unknown]
  - Biliary cirrhosis [Unknown]
  - Varices oesophageal [Unknown]
  - Lymphadenopathy [Recovered/Resolved]
  - International normalised ratio abnormal [Unknown]
  - Gene mutation [Unknown]
  - Dyspnoea [Unknown]
  - Liver transplant rejection [Unknown]
  - Peritonitis bacterial [Unknown]
  - Blood albumin abnormal [Unknown]
  - Cytogenetic abnormality [Unknown]
  - Off label use [Unknown]
  - Umbilical hernia [Unknown]
  - Proteinuria [Unknown]
  - Clubbing [Not Recovered/Not Resolved]
  - Cytomegalovirus test positive [Unknown]
  - Transaminases increased [Recovered/Resolved]
  - Eczema [Unknown]
  - Renal impairment [Unknown]
  - Post transplant lymphoproliferative disorder [Recovered/Resolved]
  - Portal hypertension [Unknown]
  - Epstein-Barr virus antibody positive [Unknown]
